FAERS Safety Report 9220138 (Version 3)
Quarter: 2013Q3

REPORT INFORMATION
  Report Type: Report from Study
  Country: FR (occurrence: FR)
  Receive Date: 20130409
  Receipt Date: 20130725
  Transmission Date: 20140515
  Serious: Yes (Hospitalization)
  Sender: FDA-Public Use
  Company Number: FR-ROCHE-1211615

PATIENT
  Age: 62 Year
  Sex: Female

DRUGS (8)
  1. PEG-INTERFERON ALFA 2A [Suspect]
     Indication: HEPATITIS C
     Route: 058
     Dates: start: 20121016, end: 20121201
  2. RIBAVIRIN [Suspect]
     Indication: HEPATITIS C
     Route: 048
     Dates: start: 20121016, end: 20121201
  3. BOCEPREVIR [Suspect]
     Indication: HEPATITIS C
     Route: 048
     Dates: start: 20121113, end: 20121201
  4. NOCTAMIDE [Concomitant]
     Indication: INSOMNIA
     Route: 048
  5. EXFORGE [Concomitant]
     Indication: HYPERTENSION
     Dosage: 5/80 MG
     Route: 048
  6. LEVOTHYROX [Concomitant]
     Indication: THYROIDITIS
     Route: 048
  7. DAFALGAN [Concomitant]
     Indication: HEADACHE
     Dosage: FREQUENCY: IF NEEDED
     Route: 048
     Dates: start: 20121106
  8. DEROXAT [Concomitant]
     Indication: DEPRESSION
     Route: 048
     Dates: start: 20121106

REACTIONS (3)
  - Palpitations [Recovered/Resolved]
  - Dyspnoea [Recovered/Resolved]
  - Asthenia [Recovered/Resolved]
